FAERS Safety Report 5027799-8 (Version None)
Quarter: 2006Q2

REPORT INFORMATION
  Report Type: 
  Country: None (occurrence: None)
  Receive Date: 20060501
  Receipt Date: 20060323
  Transmission Date: 20061013
  Serious: No
  Sender: FDA-Public Use
  Company Number: 200516996US

PATIENT
  Age: 52 Year
  Sex: Female
  Weight: 82 kg

DRUGS (5)
  1. KETEK [Suspect]
     Indication: LYME DISEASE
     Dosage: 800 MG QD PO
     Route: 048
     Dates: start: 20050801, end: 20050923
  2. SYNTHROID [Concomitant]
  3. LIOTHYRONINE SODIUM (CYTOMEL) [Concomitant]
  4. CEFTIN [Concomitant]
  5. CLAVULANATE POTASSIUM, AMOXICILLIN TRIHYDRATE (AUGMENTIN) [Concomitant]

REACTIONS (3)
  - HEARING IMPAIRED [None]
  - MUSCULOSKELETAL STIFFNESS [None]
  - PHOTOPSIA [None]
